FAERS Safety Report 7276505-5 (Version None)
Quarter: 2011Q1

REPORT INFORMATION
  Report Type: 
  Country: None (occurrence: None)
  Receive Date: 20110204
  Receipt Date: 20110202
  Transmission Date: 20110831
  Serious: Yes (Hospitalization, Other)
  Sender: FDA-Public Use
  Company Number: DE-ABBOTT-11P-062-0702030-00

PATIENT
  Sex: Female

DRUGS (2)
  1. HUMIRA [Suspect]
     Indication: CROHN'S DISEASE
     Route: 058
     Dates: start: 20090623
  2. ASACOL [Concomitant]
     Indication: CROHN'S DISEASE

REACTIONS (2)
  - INTESTINAL STENOSIS [None]
  - GASTROINTESTINAL CARCINOMA [None]
